FAERS Safety Report 4779083-5 (Version None)
Quarter: 2005Q3

REPORT INFORMATION
  Report Type: 
  Country: None (occurrence: None)
  Receive Date: 20050923
  Receipt Date: 20050913
  Transmission Date: 20060218
  Serious: Yes (Hospitalization, Other)
  Sender: FDA-Public Use
  Company Number: 216978

PATIENT
  Age: 35 Year
  Sex: Male

DRUGS (1)
  1. RAPTIVA [Suspect]
     Indication: PSORIASIS
     Dosage: 115 1/WEEK, SUBCUTANEOUS
     Route: 058
     Dates: start: 20050509, end: 20050801

REACTIONS (5)
  - IMMUNOSUPPRESSION [None]
  - INFECTION [None]
  - INTERVERTEBRAL DISC DISORDER [None]
  - INTERVERTEBRAL DISC INJURY [None]
  - INTERVERTEBRAL DISCITIS [None]
